FAERS Safety Report 5006562-8 (Version None)
Quarter: 2006Q2

REPORT INFORMATION
  Report Type: 
  Country: None (occurrence: None)
  Receive Date: 20060519
  Receipt Date: 20060517
  Transmission Date: 20061013
  Serious: Yes (Death, Life-Threatening)
  Sender: FDA-Public Use
  Company Number: 2006CG00888

PATIENT
  Age: 42 Year
  Sex: Male

DRUGS (6)
  1. MOPRAL [Suspect]
     Route: 042
     Dates: start: 20060410, end: 20060411
  2. TOPALGIC [Suspect]
     Route: 042
     Dates: start: 20060410, end: 20060411
  3. ACUPAN [Suspect]
     Route: 042
     Dates: start: 20060410, end: 20060411
  4. PROFENID [Suspect]
     Route: 042
     Dates: start: 20060410, end: 20060411
  5. LOVENOX [Suspect]
     Route: 058
     Dates: start: 20060410, end: 20060411
  6. ACETAMINOPHEN [Suspect]
     Route: 042
     Dates: start: 20060410, end: 20060411

REACTIONS (5)
  - AGITATION [None]
  - NECROTISING FASCIITIS [None]
  - RECTAL HAEMORRHAGE [None]
  - STREPTOCOCCAL INFECTION [None]
  - TREMOR [None]
